FAERS Safety Report 4956927-5 (Version None)
Quarter: 2006Q1

REPORT INFORMATION
  Report Type: 
  Country: None (occurrence: None)
  Receive Date: 20060127
  Receipt Date: 20041130
  Transmission Date: 20060701
  Serious: Yes (Death, Hospitalization)
  Sender: FDA-Public Use
  Company Number: 04-11-1664

PATIENT
  Age: 79 Year
  Sex: Female

DRUGS (1)
  1. CLOZAPINE [Suspect]
     Indication: PARKINSON'S DISEASE
     Dosage: 75-150MG QD, ORAL
     Route: 048
     Dates: start: 20031001, end: 20041101

REACTIONS (3)
  - DYSPNOEA [None]
  - RESPIRATORY DISTRESS [None]
  - SUDDEN CARDIAC DEATH [None]
